FAERS Safety Report 4904721-3 (Version None)
Quarter: 2006Q1

REPORT INFORMATION
  Report Type: 
  Country: None (occurrence: None)
  Receive Date: 20060208
  Receipt Date: 20050920
  Transmission Date: 20060701
  Serious: Yes (Other)
  Sender: FDA-Public Use
  Company Number: PT-ROCHE-425636

PATIENT
  Age: 49 Year
  Sex: Female
  Weight: 54 kg

DRUGS (1)
  1. XENICAL [Suspect]
     Indication: DRUG USE FOR UNKNOWN INDICATION
     Dosage: REPRORTED AS ^2 OR 3 TABLETS PER DAY^
     Route: 048
     Dates: start: 20050215

REACTIONS (1)
  - HIGH DENSITY LIPOPROTEIN DECREASED [None]
